FAERS Safety Report 8715478 (Version 2)
Quarter: 2012Q4

REPORT INFORMATION
  Report Type: Report from Study
  Country: FI (occurrence: FI)
  Receive Date: 20120809
  Receipt Date: 20121012
  Transmission Date: 20130627
  Serious: Yes (Other)
  Sender: FDA-Public Use
  Company Number: FI-ROCHE-772559

PATIENT
  Sex: Female

DRUGS (6)
  1. MABTHERA [Suspect]
     Indication: RHEUMATOID ARTHRITIS
     Dosage: DOSAGE REGIMEN GIVEN AS: IN COURSE OF 2 INFUSIONS OF 1000 MG. Most recent dose was taken in fall of
     Route: 042
     Dates: start: 20060110, end: 201009
  2. LEFLUNOMIDE [Suspect]
     Indication: RHEUMATOID ARTHRITIS
     Dosage: DOSE REGIMEN REPORTED AS: UNREGULARLY
     Route: 065
  3. CORTISONE [Concomitant]
     Indication: RHEUMATOID ARTHRITIS
     Route: 065
  4. HYDROXYCHLOROQUINE [Concomitant]
     Route: 065
  5. PREDNISOLON [Concomitant]
     Indication: RHEUMATOID ARTHRITIS
     Route: 048
  6. KALCIPOS-D [Concomitant]
     Route: 048

REACTIONS (3)
  - Exposure during pregnancy [Unknown]
  - Caesarean section [Recovered/Resolved]
  - Blood pressure increased [Unknown]
